FAERS Safety Report 5343725-6 (Version None)
Quarter: 2007Q2

REPORT INFORMATION
  Report Type: 
  Country: None (occurrence: None)
  Receive Date: 20070531
  Receipt Date: 20070531
  Transmission Date: 20071010
  Serious: Yes (Disabling)
  Sender: FDA-Public Use
  Company Number: None

PATIENT
  Sex: Female
  Weight: 72.5755 kg

DRUGS (3)
  1. QVAR - 2 PUFFS 4 X DAILY [Suspect]
     Indication: EMPHYSEMA
     Dosage: 4 X DAILY
     Dates: start: 20061228
  2. ATROVENT HFA [Suspect]
     Indication: EMPHYSEMA
     Dosage: 4X DAILY
     Dates: start: 20061228
  3. ADVAIR HFA [Suspect]
     Indication: EMPHYSEMA
     Dosage: 4 X DAILY
     Dates: start: 20061228

REACTIONS (2)
  - APHONIA [None]
  - DYSPHONIA [None]
